FAERS Safety Report 5533268-9 (Version None)
Quarter: 2007Q4

REPORT INFORMATION
  Report Type: 
  Country: None (occurrence: None)
  Receive Date: 20071204
  Receipt Date: 20071123
  Transmission Date: 20080405
  Serious: Yes (Hospitalization)
  Sender: FDA-Public Use
  Company Number: B0497303A

PATIENT
  Age: 83 Year
  Sex: Female

DRUGS (6)
  1. DEROXAT [Suspect]
     Indication: DEPRESSION
     Dosage: 20MG PER DAY
     Route: 048
     Dates: start: 20060801, end: 20070929
  2. CELECTOL [Concomitant]
     Dosage: 200Z PER DAY
     Route: 048
  3. ARICEPT [Concomitant]
     Dosage: 10MG PER DAY
  4. RISPERDAL [Concomitant]
     Dosage: 750MCG PER DAY
     Route: 048
  5. LEVOTHYROX [Concomitant]
     Dosage: 75MCG PER DAY
  6. ZOLPIDEM TARTRATE [Concomitant]
     Dosage: 1UNIT PER DAY

REACTIONS (4)
  - APATHY [None]
  - ASTHENIA [None]
  - FALL [None]
  - HYPONATRAEMIA [None]
